FAERS Safety Report 9387765 (Version 1)
Quarter: 2013Q3

REPORT INFORMATION
  Report Type: Spontaneous
  Country: GB (occurrence: None)
  Receive Date: 20130703
  Receipt Date: 20130703
  Transmission Date: 20140515
  Serious: Yes (Life-Threatening)
  Sender: FDA-Public Use
  Company Number: COL_13896_2013

PATIENT
  Age: 68 Year
  Sex: Female
  Weight: 68 kg

DRUGS (7)
  1. CHLORHEXIDINE GLUCONATE [Suspect]
     Indication: PREOPERATIVE CARE
     Dosage: (10DF/TWICE/)
     Route: 061
     Dates: start: 20130530, end: 20130530
  2. CEFUROXIME [Suspect]
     Indication: PRODUCT USED FOR UNKNOWN INDICATION
     Dosage: (NOT OTHERWISE SPECIFIED)
     Route: 042
     Dates: start: 20130530, end: 20130530
  3. DEXAMETHASONE [Concomitant]
  4. FENTANYL [Concomitant]
  5. MEBEVERINE [Concomitant]
  6. MIDAZOLAM [Concomitant]
  7. ONDAMSETRON [Concomitant]

REACTIONS (2)
  - Blood blister [None]
  - Blood pressure abnormal [None]
